APPROVED DRUG PRODUCT: LIDOCAINE HYDROCHLORIDE
Active Ingredient: LIDOCAINE HYDROCHLORIDE
Strength: 2%
Dosage Form/Route: JELLY;TOPICAL
Application: A040837 | Product #001
Applicant: WATSON LABORATORIES INC
Approved: Mar 23, 2011 | RLD: No | RS: No | Type: DISCN